FAERS Safety Report 11106430 (Version 1)
Quarter: 2015Q2

REPORT INFORMATION
  Report Type: Spontaneous
  Country: US (occurrence: None)
  Receive Date: 20150511
  Receipt Date: 20150511
  Transmission Date: 20150821
  Serious: Yes (Other)
  Sender: FDA-Public Use
  Company Number: None

PATIENT
  Age: 72 Year
  Sex: Male
  Weight: 92.08 kg

DRUGS (14)
  1. D3 [Concomitant]
     Active Substance: 25-HYDROXYCHOLECALCIFEROL, 5-TRANS-
  2. SIMVASTATIN. [Suspect]
     Active Substance: SIMVASTATIN
     Indication: BLOOD CHOLESTEROL ABNORMAL
     Dosage: 40 MG  TAB 1  AT BEDTIME TAKEN BY MOUTH
     Route: 048
     Dates: start: 20150101, end: 20150430
  3. TAMULOSIN [Concomitant]
     Active Substance: TAMSULOSIN
  4. ALBUTEROL. [Concomitant]
     Active Substance: ALBUTEROL
  5. ACETAMINOPHEN. [Concomitant]
     Active Substance: ACETAMINOPHEN
  6. VITAMIN B12 [Concomitant]
     Active Substance: CYANOCOBALAMIN
  7. LORATADINE. [Concomitant]
     Active Substance: LORATADINE
  8. HYDROXYCHLOROQUINE [Concomitant]
     Active Substance: HYDROXYCHLOROQUINE
  9. RIVAROXABAN [Concomitant]
     Active Substance: RIVAROXABAN
  10. ASPIRIN. [Concomitant]
     Active Substance: ASPIRIN
  11. FOLIC ACID. [Concomitant]
     Active Substance: FOLIC ACID
  12. ENALAPRIL [Concomitant]
     Active Substance: ENALAPRIL
  13. GILIPIZIDE [Concomitant]
  14. METOPROLOL TARTRATE. [Concomitant]
     Active Substance: METOPROLOL TARTRATE

REACTIONS (2)
  - Chest pain [None]
  - Heart rate increased [None]
